FAERS Safety Report 10195011 (Version 1)
Quarter: 2014Q2

REPORT INFORMATION
  Report Type: Report from Study
  Country: US (occurrence: US)
  Receive Date: 20140526
  Receipt Date: 20140526
  Transmission Date: 20141212
  Serious: Yes (Hospitalization)
  Sender: FDA-Public Use
  Company Number: PHEH2014US010114

PATIENT
  Sex: Female

DRUGS (3)
  1. CLOZARIL [Suspect]
     Dosage: UNK
  2. CLOZARIL [Suspect]
     Dosage: 200 MG (50MG IN THE MORNING AND 150MG IN THE EVENING) DAILY
  3. CLOZAPINE [Suspect]
     Dosage: UNK

REACTIONS (3)
  - Bipolar disorder [Unknown]
  - Mania [Unknown]
  - Psychotic disorder [Unknown]
